FAERS Safety Report 24228960 (Version 1)
Quarter: 2024Q3

REPORT INFORMATION
  Report Type: Report from Study
  Country: US (occurrence: US)
  Receive Date: 20240820
  Receipt Date: 20240820
  Transmission Date: 20241016
  Serious: Yes (Other)
  Sender: ABBVIE
  Company Number: US-ABBVIE-5881744

PATIENT
  Sex: Female

DRUGS (1)
  1. HUMIRA [Suspect]
     Active Substance: ADALIMUMAB
     Indication: Rheumatoid arthritis
     Route: 058

REACTIONS (6)
  - Acrochordon [Unknown]
  - Sinusitis [Unknown]
  - Erythema [Unknown]
  - Wound [Unknown]
  - Periorbital swelling [Unknown]
  - Wound infection [Unknown]

NARRATIVE: CASE EVENT DATE: 20240101
